FAERS Safety Report 19096372 (Version 1)
Quarter: 2021Q2

REPORT INFORMATION
  Report Type: Other
  Country: US (occurrence: US)
  Receive Date: 20210406
  Receipt Date: 20210406
  Transmission Date: 20210717
  Serious: Yes (Other)
  Sender: FDA-Public Use
  Company Number: US-ROCHE-2799520

PATIENT
  Sex: Female
  Weight: 68.1 kg

DRUGS (2)
  1. HYDROCHLOROTHIAZIDE. [Concomitant]
     Active Substance: HYDROCHLOROTHIAZIDE
  2. OCREVUS [Suspect]
     Active Substance: OCRELIZUMAB
     Indication: MULTIPLE SCLEROSIS
     Dosage: DATE OF TREATMENT: 8/14/2020, 2/19/2019, 09/09/2019, 08/27/2018, 02/26/2018, 08/17/2017
     Route: 042
     Dates: start: 2017

REACTIONS (4)
  - Gait disturbance [Not Recovered/Not Resolved]
  - Joint swelling [Not Recovered/Not Resolved]
  - JC polyomavirus test positive [Unknown]
  - Multiple sclerosis [Unknown]
